FAERS Safety Report 4665794-9 (Version None)
Quarter: 2005Q2

REPORT INFORMATION
  Report Type: 
  Country: None (occurrence: None)
  Receive Date: 20050516
  Receipt Date: 20050516
  Transmission Date: 20051028
  Serious: Yes (Life-Threatening, Hospitalization)
  Sender: FDA-Public Use
  Company Number: None

PATIENT
  Sex: Male
  Weight: 85 kg

DRUGS (8)
  1. RAPAMYCIN [Suspect]
     Indication: OESOPHAGEAL CANCER METASTATIC
     Dosage: 1 MG PO Q WEEK
     Route: 048
     Dates: start: 20050209, end: 20050420
  2. KETOCONAZOLE [Suspect]
     Dosage: 200 MG PO BID X1, QDX3
     Route: 048
     Dates: start: 20050215, end: 20050421
  3. OXYCONTIN [Concomitant]
  4. SENNOKOT [Concomitant]
  5. TYLENOL W/ CODEINE NO. 3 [Concomitant]
  6. PRILOSEC [Concomitant]
  7. COLACE [Concomitant]
  8. TESSALON [Concomitant]

REACTIONS (9)
  - CONVULSION [None]
  - GASTRIC ULCER [None]
  - GASTROINTESTINAL HAEMORRHAGE [None]
  - LOSS OF CONSCIOUSNESS [None]
  - MASS [None]
  - SYNCOPE [None]
  - THROMBOSIS [None]
  - TONIC CLONIC MOVEMENTS [None]
  - URINARY INCONTINENCE [None]
